FAERS Safety Report 6557643-9 (Version None)
Quarter: 2010Q1

REPORT INFORMATION
  Report Type: 
  Country: None (occurrence: None)
  Receive Date: 20100129
  Receipt Date: 20100120
  Transmission Date: 20100710
  Serious: Yes (Hospitalization)
  Sender: FDA-Public Use
  Company Number: FR-ASTRAZENECA-2010SE02603

PATIENT
  Age: 992 Month
  Sex: Male

DRUGS (4)
  1. OMEPRAZOLE [Suspect]
     Route: 048
     Dates: start: 20060101, end: 20090604
  2. TAHOR [Concomitant]
     Route: 048
     Dates: start: 20060101
  3. KARDEGIC [Concomitant]
     Route: 048
     Dates: start: 20060101
  4. PREVISCAN [Concomitant]
     Dates: start: 20060101, end: 20090529

REACTIONS (4)
  - ECZEMA [None]
  - ERYTHEMA [None]
  - HYPERKERATOSIS [None]
  - PRURITUS [None]
